FAERS Safety Report 4813695-5 (Version None)
Quarter: 2005Q4

REPORT INFORMATION
  Report Type: 
  Country: None (occurrence: None)
  Receive Date: 20051028
  Receipt Date: 20050621
  Transmission Date: 20060501
  Serious: No
  Sender: FDA-Public Use
  Company Number: US-GLAXOSMITHKLINE-A0563637A

PATIENT
  Age: 57 Year
  Sex: Male

DRUGS (3)
  1. IMITREX [Suspect]
     Indication: MIGRAINE
     Dosage: 2SPR PER DAY
     Route: 045
     Dates: start: 20050617, end: 20050618
  2. PREDNISONE [Concomitant]
  3. THEOPHYLLINE [Concomitant]

REACTIONS (1)
  - DRUG INEFFECTIVE [None]
